FAERS Safety Report 14464650 (Version 1)
Quarter: 2018Q1

REPORT INFORMATION
  Report Type: Other
  Country: US (occurrence: US)
  Receive Date: 20180130
  Receipt Date: 20180130
  Transmission Date: 20180509
  Serious: No
  Sender: FDA-Public Use
  Company Number: US-ACORDA-ACO_135327_2017

PATIENT
  Age: 57 Year
  Sex: Male

DRUGS (1)
  1. AMPYRA [Suspect]
     Active Substance: DALFAMPRIDINE
     Indication: LOSS OF PERSONAL INDEPENDENCE IN DAILY ACTIVITIES
     Dosage: 10 MG, BID
     Route: 048
     Dates: start: 2014

REACTIONS (4)
  - Therapeutic response unexpected [Unknown]
  - Immobile [Not Recovered/Not Resolved]
  - Off label use [Unknown]
  - Therapy cessation [Unknown]

NARRATIVE: CASE EVENT DATE: 20140710
